FAERS Safety Report 14735493 (Version 1)
Quarter: 2018Q2

REPORT INFORMATION
  Report Type: Spontaneous
  Country: US (occurrence: US)
  Receive Date: 20180403
  Receipt Date: 20180403
  Transmission Date: 20180711
  Serious: No
  Sender: FDA-Public Use
  Company Number: None

PATIENT
  Age: 73 Year
  Sex: Female
  Weight: 54.9 kg

DRUGS (5)
  1. PROPRANOLOL [Concomitant]
     Active Substance: PROPRANOLOL HYDROCHLORIDE
  2. ALENDRONATE SODIUM. [Concomitant]
     Active Substance: ALENDRONATE SODIUM
  3. NORTRIPTYLINE [Concomitant]
     Active Substance: NORTRIPTYLINE
  4. GENERIC MULTI-VITAMIN MULTI-MINERAL FOR SENIORS [Concomitant]
  5. XIIDRA [Suspect]
     Active Substance: LIFITEGRAST
     Indication: DRY EYE
     Dosage: ?          QUANTITY:2 DROP(S);?
     Route: 047

REACTIONS (8)
  - Pain [None]
  - Skin burning sensation [None]
  - Swelling [None]
  - Rhinorrhoea [None]
  - Skin exfoliation [None]
  - Skin fissures [None]
  - Oropharyngeal pain [None]
  - Blister [None]

NARRATIVE: CASE EVENT DATE: 20180308
